FAERS Safety Report 22700389 (Version 2)
Quarter: 2023Q4

REPORT INFORMATION
  Report Type: Report from Study
  Country: US (occurrence: US)
  Receive Date: 20230713
  Receipt Date: 20231003
  Transmission Date: 20240110
  Serious: Yes (Other)
  Sender: FDA-Public Use
  Company Number: US-ABBVIE-4770585

PATIENT
  Age: 73 Year
  Sex: Female
  Weight: 73.936 kg

DRUGS (2)
  1. HUMIRA [Suspect]
     Active Substance: ADALIMUMAB
     Indication: Psoriatic arthropathy
     Dosage: FORM STRENGTH : 40 MILLIGRAM
     Route: 058
     Dates: end: 20221118
  2. HUMIRA [Suspect]
     Active Substance: ADALIMUMAB
     Dosage: FORM STRENGTH : 40 MILLIGRAM?FIRST ADMIN DATE: 02 MAY 2023 (STARTED BACK)
     Route: 058

REACTIONS (3)
  - Gallbladder disorder [Recovering/Resolving]
  - Large intestine polyp [Unknown]
  - Diarrhoea [Recovered/Resolved]

NARRATIVE: CASE EVENT DATE: 20221001
